FAERS Safety Report 18222959 (Version 2)
Quarter: 2020Q4

REPORT INFORMATION
  Report Type: Other
  Country: GB (occurrence: GB)
  Receive Date: 20200902
  Receipt Date: 20201006
  Transmission Date: 20210113
  Serious: No
  Sender: FDA-Public Use
  Company Number: GB-ASPEN-GLO2020GB008400

PATIENT
  Age: 59 Year
  Sex: Male

DRUGS (3)
  1. DEXAMETHASONE. [Suspect]
     Active Substance: DEXAMETHASONE
     Indication: PRODUCT USED FOR UNKNOWN INDICATION
     Dosage: UNK
     Route: 065
  2. AXITINIB [Suspect]
     Active Substance: AXITINIB
     Indication: RENAL CANCER METASTATIC
     Dosage: FULL DOSE
     Route: 065
  3. AVELUMAB [Suspect]
     Active Substance: AVELUMAB
     Indication: RENAL CANCER METASTATIC
     Dosage: FULL DOSE
     Route: 065

REACTIONS (6)
  - Back pain [Unknown]
  - Fatigue [Unknown]
  - Hypertension [Unknown]
  - Blood pressure decreased [Unknown]
  - Chills [Unknown]
  - Mucosal inflammation [Unknown]
